FAERS Safety Report 11739417 (Version 1)
Quarter: 2015Q4

REPORT INFORMATION
  Report Type: Spontaneous
  Country: US (occurrence: US)
  Receive Date: 20151113
  Receipt Date: 20151113
  Transmission Date: 20160304
  Serious: Yes (Hospitalization, Other)
  Sender: FDA-Public Use
  Company Number: US-ASTRAZENECA-2014SE85326

PATIENT
  Age: 74 Year
  Sex: Female
  Weight: 70.3 kg

DRUGS (2)
  1. SYMBICORT [Suspect]
     Active Substance: BUDESONIDE\FORMOTEROL FUMARATE DIHYDRATE
     Indication: CHRONIC OBSTRUCTIVE PULMONARY DISEASE
     Dosage: 2 PUFFS, BID
     Route: 055
  2. SYMBICORT [Suspect]
     Active Substance: BUDESONIDE\FORMOTEROL FUMARATE DIHYDRATE
     Indication: CHRONIC OBSTRUCTIVE PULMONARY DISEASE
     Dosage: 160 4.5MCG, 2 PUFFS, BID
     Route: 055
     Dates: start: 2014

REACTIONS (10)
  - Asthma [Unknown]
  - Product quality issue [Unknown]
  - Musculoskeletal pain [Unknown]
  - Cataract [Unknown]
  - Lung infection pseudomonal [Unknown]
  - Pneumonia [Unknown]
  - Bronchitis [Unknown]
  - Multiple allergies [Unknown]
  - Intentional product misuse [Unknown]
  - Drug dose omission [Unknown]
